FAERS Safety Report 11935701 (Version 1)
Quarter: 2016Q1

REPORT INFORMATION
  Report Type: Spontaneous
  Country: JP (occurrence: JP)
  Receive Date: 20160121
  Receipt Date: 20160121
  Transmission Date: 20160526
  Serious: Yes (Hospitalization)
  Sender: FDA-Public Use
  Company Number: PHBS1998JP27746

PATIENT
  Age: 74 Year
  Sex: Male
  Weight: 74.5 kg

DRUGS (6)
  1. LOXONIN (LOXOPROFEN SODIUM) [Suspect]
     Active Substance: LOXOPROFEN SODIUM
     Dosage: UNSPECIFIED
  2. TERNELIN (TIZANIDINE HYDROCHLORIDE) [Suspect]
     Active Substance: TIZANIDINE HYDROCHLORIDE
     Route: 048
     Dates: start: 19980131, end: 19980204
  3. VOLTAROL [Suspect]
     Active Substance: DICLOFENAC SODIUM
     Indication: BACK PAIN
     Route: 048
  4. VITAMEDINE (VITAMEDIN CAPSULE) [Concomitant]
  5. MYONAL (EPERISONE HYDROCHLORIDE) [Suspect]
     Active Substance: EPERISONE HYDROCHLORIDE
     Dosage: UNSPECIFIED
  6. METHYCOBAL (MECOBALAMIN) [Concomitant]

REACTIONS (6)
  - Dizziness [None]
  - Somnolence [None]
  - Hypokalaemia [None]
  - Loss of consciousness [Recovered/Resolved]
  - Hypophagia [None]
  - Fluid intake reduced [None]

NARRATIVE: CASE EVENT DATE: 19980206
